FAERS Safety Report 5732857-6 (Version None)
Quarter: 2008Q2

REPORT INFORMATION
  Report Type: 
  Country: None (occurrence: None)
  Receive Date: 20080507
  Receipt Date: 20080507
  Transmission Date: 20081010
  Serious: Yes (Life-Threatening)
  Sender: FDA-Public Use
  Company Number: None

PATIENT
  Age: 64 Year
  Sex: Female
  Weight: 117.9352 kg

DRUGS (1)
  1. DIGITEK 25MG PATHMARK [Suspect]
     Indication: CARDIAC DISORDER
     Dosage: 25 MG ONCE DAILY INTRACARDIA
     Route: 016
     Dates: start: 20070519, end: 20080502

REACTIONS (3)
  - ASTHENIA [None]
  - HEART RATE DECREASED [None]
  - SOMNOLENCE [None]
